FAERS Safety Report 23711885 (Version 1)
Quarter: 2024Q2

REPORT INFORMATION
  Report Type: Spontaneous
  Country: US (occurrence: US)
  Receive Date: 20240405
  Receipt Date: 20240405
  Transmission Date: 20240717
  Serious: No
  Sender: FDA-Public Use
  Company Number: US-ABBVIE-5700365

PATIENT
  Sex: Male

DRUGS (4)
  1. SKYRIZI [Suspect]
     Active Substance: RISANKIZUMAB-RZAA
     Indication: Psoriatic arthropathy
     Route: 058
     Dates: end: 2024
  2. SKYRIZI [Suspect]
     Active Substance: RISANKIZUMAB-RZAA
     Indication: Psoriasis
  3. ENBREL [Concomitant]
     Active Substance: ETANERCEPT
     Indication: Product used for unknown indication
  4. STELARA [Concomitant]
     Active Substance: USTEKINUMAB
     Indication: Product used for unknown indication

REACTIONS (17)
  - Fatigue [Unknown]
  - Peripheral coldness [Unknown]
  - Back pain [Unknown]
  - Hyperhidrosis [Unknown]
  - Decreased appetite [Unknown]
  - Scoliosis [Unknown]
  - Dizziness [Unknown]
  - Feeling abnormal [Unknown]
  - Osteoarthritis [Unknown]
  - Swelling [Unknown]
  - Gastrointestinal disorder [Unknown]
  - Neck pain [Unknown]
  - Balance disorder [Unknown]
  - Panic disorder [Unknown]
  - Nervousness [Unknown]
  - Greater trochanteric pain syndrome [Unknown]
  - Musculoskeletal disorder [Unknown]

NARRATIVE: CASE EVENT DATE: 20240320
